FAERS Safety Report 13426648 (Version 1)
Quarter: 2017Q2

REPORT INFORMATION
  Report Type: Spontaneous
  Country: US (occurrence: US)
  Receive Date: 20170411
  Receipt Date: 20170411
  Transmission Date: 20170830
  Serious: Yes (Hospitalization)
  Sender: FDA-Public Use
  Company Number: None

PATIENT
  Sex: Male
  Weight: 107.4 kg

DRUGS (7)
  1. RIBAVIRIN 800MG [Suspect]
     Active Substance: RIBAVIRIN
     Indication: HEPATITIS C
     Route: 048
     Dates: start: 20161213, end: 20161227
  2. SPIRONOLACTONE. [Suspect]
     Active Substance: SPIRONOLACTONE
  3. PALLHPRAZOL [Concomitant]
  4. EPCLUSA [Suspect]
     Active Substance: SOFOSBUVIR\VELPATASVIR
     Indication: HEPATITIS C
     Dosage: 400MG/100MG DAILY P.O.
     Route: 048
     Dates: start: 20161213, end: 20170308
  5. LANTUS [Concomitant]
     Active Substance: INSULIN GLARGINE
  6. INSULIN [Concomitant]
     Active Substance: INSULIN NOS
  7. TORASEMID [Concomitant]
     Active Substance: TORSEMIDE

REACTIONS (2)
  - Cardiovascular disorder [None]
  - Dehydration [None]

NARRATIVE: CASE EVENT DATE: 20170105
